FAERS Safety Report 5510716-1 (Version None)
Quarter: 2007Q4

REPORT INFORMATION
  Report Type: 
  Country: None (occurrence: None)
  Receive Date: 20071108
  Receipt Date: 20071102
  Transmission Date: 20080405
  Serious: Yes (Hospitalization)
  Sender: FDA-Public Use
  Company Number: A0691262A

PATIENT
  Age: 75 Year
  Sex: Female

DRUGS (3)
  1. AVANDIA [Suspect]
     Dosage: 4MG PER DAY
     Route: 048
     Dates: start: 20000101, end: 20070801
  2. HEART MEDICATION [Concomitant]
  3. CHOLESTEROL REDUCING AGENT [Concomitant]

REACTIONS (4)
  - ASTHENIA [None]
  - CARDIAC PACEMAKER INSERTION [None]
  - MYALGIA [None]
  - MYOCARDIAL INFARCTION [None]
